FAERS Safety Report 22110131 (Version 1)
Quarter: 2023Q1

REPORT INFORMATION
  Report Type: Report from Study
  Country: CN (occurrence: None)
  Receive Date: 20230317
  Receipt Date: 20230317
  Transmission Date: 20230418
  Serious: Yes (Hospitalization)
  Sender: FDA-Public Use
  Company Number: CN-ROCHE-3309992

PATIENT
  Age: 68 Year
  Sex: Female
  Weight: 56 kg

DRUGS (53)
  1. TRASTUZUMAB [Suspect]
     Active Substance: TRASTUZUMAB
     Indication: Gastric cancer
     Route: 065
     Dates: start: 20220713
  2. TRASTUZUMAB [Suspect]
     Active Substance: TRASTUZUMAB
     Indication: Oesophageal adenocarcinoma
  3. CAPECITABINE [Suspect]
     Active Substance: CAPECITABINE
     Indication: Gastric cancer
     Dosage: D1-14
     Route: 048
     Dates: start: 20220713
  4. CAPECITABINE [Suspect]
     Active Substance: CAPECITABINE
     Indication: Oesophageal adenocarcinoma
  5. OXALIPLATIN [Suspect]
     Active Substance: OXALIPLATIN
     Indication: Gastric cancer
     Route: 041
     Dates: start: 20220713
  6. OXALIPLATIN [Suspect]
     Active Substance: OXALIPLATIN
     Indication: Oesophageal adenocarcinoma
  7. PALONOSETRON HYDROCHLORIDE [Concomitant]
     Active Substance: PALONOSETRON HYDROCHLORIDE
     Route: 042
     Dates: start: 20220713, end: 20220713
  8. PROMETHAZINE HYDROCHLORIDE [Concomitant]
     Active Substance: PROMETHAZINE HYDROCHLORIDE
  9. NIFEDIPINE [Concomitant]
     Active Substance: NIFEDIPINE
     Indication: Neutrophil count decreased
  10. DEXAMETHASONE SODIUM PHOSPHATE [Concomitant]
     Active Substance: DEXAMETHASONE SODIUM PHOSPHATE
     Indication: Neutrophil count decreased
  11. PIOGLITAZONE HYDROCHLORIDE [Concomitant]
     Active Substance: PIOGLITAZONE HYDROCHLORIDE
  12. PROTAMINE RECOMBINANT HUMAN INSULIN [Concomitant]
  13. LEUCOGEN [Concomitant]
     Active Substance: LEUCOGEN
  14. HUMAN GRANULOCYTE STIMULATING FACTOR NEEDLE (UNK INGREDIENTS) [Concomitant]
  15. POLYSACCHARIDE IRON [Concomitant]
  16. INSULIN NOS [Concomitant]
     Active Substance: INSULIN NOS
  17. PEGYLATED RECOMBINANT HUMAN GRANULOCYTE STIMULATING FACTOR INJECTION ( [Concomitant]
  18. CAFFEIC ACID [Concomitant]
     Active Substance: CAFFEIC ACID
  19. SIMETHICONE (DIMETHICONE) [Concomitant]
     Active Substance: DIMETHICONE
  20. BENOXINATE HYDROCHLORIDE [Concomitant]
     Active Substance: BENOXINATE HYDROCHLORIDE
  21. PROTEASE [Concomitant]
     Active Substance: PROTEASE
  22. POTASSIUM CHLORIDE [Concomitant]
     Active Substance: POTASSIUM CHLORIDE
  23. INVERT SUGAR [Concomitant]
     Active Substance: INVERT SUGAR
  24. CEFOPERAZONE\TAZOBACTAM SODIUM [Concomitant]
     Active Substance: CEFOPERAZONE\TAZOBACTAM SODIUM
  25. REMIFENTANIL HYDROCHLORIDE [Concomitant]
     Active Substance: REMIFENTANIL HYDROCHLORIDE
  26. DEXTROSE [Concomitant]
     Active Substance: DEXTROSE
  27. ALANYL GLUTAMINE [Concomitant]
     Active Substance: ALANYL GLUTAMINE
  28. CALCIUM GLUCONATE [Concomitant]
     Active Substance: CALCIUM GLUCONATE
  29. COMPOUND MEGLUMINE DIATRIZOATE [Concomitant]
  30. FAT SOLUBLE VITAMINS NOS [Concomitant]
  31. STERILE WATER [Concomitant]
     Active Substance: WATER
  32. SODIUM CHLORIDE [Concomitant]
     Active Substance: SODIUM CHLORIDE
  33. MAGNESIUM SULFATE [Concomitant]
     Active Substance: MAGNESIUM SULFATE
  34. FAT EMULSION NOS [Concomitant]
     Active Substance: EGG PHOSPHOLIPIDS\SAFFLOWER OIL\SOYBEAN OIL
  35. AMINO ACIDS, SOURCE UNSPECIFIED [Concomitant]
     Active Substance: AMINO ACIDS, SOURCE UNSPECIFIED
  36. SUFENTANIL CITRATE [Concomitant]
     Active Substance: SUFENTANIL CITRATE
  37. EPHEDRINE HYDROCHLORIDE [Concomitant]
     Active Substance: EPHEDRINE HYDROCHLORIDE
  38. MORPHINE HYDROCHLORIDE [Concomitant]
     Active Substance: MORPHINE HYDROCHLORIDE
  39. ESOMEPRAZOLE SODIUM [Concomitant]
     Active Substance: ESOMEPRAZOLE SODIUM
  40. AMMONIUM GLYCYRRHIZATE [Concomitant]
     Active Substance: AMMONIUM GLYCYRRHIZATE
  41. AMBROXOL HYDROCHLORIDE [Concomitant]
     Active Substance: AMBROXOL HYDROCHLORIDE
  42. MAGNESIUM ISOGLYCYRRHIZINATE [Concomitant]
     Active Substance: MAGNESIUM ISOGLYCYRRHIZINATE
  43. BECLOMETHASONE DIPROPIONATE [Concomitant]
     Active Substance: BECLOMETHASONE DIPROPIONATE
  44. ACETYLCYSTEINE [Concomitant]
     Active Substance: ACETYLCYSTEINE
  45. OCTREOTIDE ACETATE [Concomitant]
     Active Substance: OCTREOTIDE ACETATE
  46. BEMIPARIN SODIUM [Concomitant]
     Active Substance: BEMIPARIN SODIUM
  47. AMINO ACIDS, SOURCE UNSPECIFIED [Concomitant]
     Active Substance: AMINO ACIDS, SOURCE UNSPECIFIED
  48. POTASSIUM ASPARTATE [Concomitant]
     Active Substance: POTASSIUM ASPARTATE
  49. FUROSEMIDE [Concomitant]
     Active Substance: FUROSEMIDE
  50. ANDROGRAPHOLIDE [Concomitant]
     Active Substance: ANDROGRAPHOLIDE
  51. PROTAMINE RECOMBINANT HUMAN INSULIN [Concomitant]
  52. CEFUROXIME AXETIL [Concomitant]
     Active Substance: CEFUROXIME AXETIL
  53. SODIUM BICARBONATE [Concomitant]
     Active Substance: SODIUM BICARBONATE

REACTIONS (1)
  - Neutrophil count decreased [Recovering/Resolving]

NARRATIVE: CASE EVENT DATE: 20230311
